FAERS Safety Report 8911486 (Version 3)
Quarter: 2014Q3

REPORT INFORMATION
  Report Type: Spontaneous
  Country: US (occurrence: US)
  Receive Date: 20121115
  Receipt Date: 20140911
  Transmission Date: 20150326
  Serious: Yes (Hospitalization)
  Sender: FDA-Public Use
  Company Number: US-GILEAD-2012-0064623

PATIENT
  Age: 53 Year
  Sex: Female
  Weight: 130 kg

DRUGS (8)
  1. TYVASO [Suspect]
     Active Substance: TREPROSTINIL
     Indication: PULMONARY ARTERIAL HYPERTENSION
     Dosage: 54 ?G, QID
     Route: 055
     Dates: start: 20110414
  2. SIMVASTATIN. [Concomitant]
     Active Substance: SIMVASTATIN
  3. COUMADIN [Concomitant]
     Active Substance: WARFARIN SODIUM
  4. SPIRONOLACTONE. [Concomitant]
     Active Substance: SPIRONOLACTONE
  5. JANUVIA [Concomitant]
     Active Substance: SITAGLIPTIN PHOSPHATE
  6. REQUIP [Concomitant]
     Active Substance: ROPINIROLE HYDROCHLORIDE
  7. ZANTAC [Concomitant]
     Active Substance: RANITIDINE HYDROCHLORIDE
  8. LETAIRIS [Suspect]
     Active Substance: AMBRISENTAN
     Indication: PULMONARY ARTERIAL HYPERTENSION
     Dosage: 10 MG, QD
     Route: 048
     Dates: start: 201101

REACTIONS (1)
  - Asthma [Recovered/Resolved]

NARRATIVE: CASE EVENT DATE: 20121105
